FAERS Safety Report 4869014-1 (Version None)
Quarter: 2005Q4

REPORT INFORMATION
  Report Type: 
  Country: None (occurrence: None)
  Receive Date: 20051223
  Receipt Date: 20051201
  Transmission Date: 20060501
  Serious: Yes (Hospitalization, Other)
  Sender: FDA-Public Use
  Company Number: GBT040901658

PATIENT
  Age: 57 Year
  Sex: Female

DRUGS (4)
  1. GEMCITABINE HYDROCHLORIDE [Suspect]
     Indication: BLADDER CANCER
     Dosage: 1938 MG, OTHER, UNK
     Dates: start: 20040329, end: 20040713
  2. CISPLATIN [Suspect]
     Indication: BLADDER CANCER
     Dosage: 136 MG, OTHER, UNK
     Dates: start: 20040329, end: 20040713
  3. PACLITAXEL [Suspect]
     Indication: BLADDER CANCER
     Dosage: 155 MG, OTHER, UNK
     Dates: start: 20040329, end: 20040713
  4. DOCUSATE SODIUM (DOCUSATE SODIUM) [Concomitant]

REACTIONS (20)
  - ASTHENIA [None]
  - BLOOD PHOSPHORUS INCREASED [None]
  - BLOOD SODIUM DECREASED [None]
  - BLOOD UREA INCREASED [None]
  - DIFFICULTY IN WALKING [None]
  - DIPLEGIA [None]
  - DYSAESTHESIA [None]
  - EOSINOPHIL COUNT DECREASED [None]
  - FEELING ABNORMAL [None]
  - HAEMATOCRIT DECREASED [None]
  - HAEMOGLOBIN DECREASED [None]
  - HEMIPARESIS [None]
  - METASTASES TO CENTRAL NERVOUS SYSTEM [None]
  - NEUTROPHIL COUNT INCREASED [None]
  - PARAESTHESIA [None]
  - PERIPHERAL SENSORY NEUROPATHY [None]
  - PLATELET COUNT INCREASED [None]
  - RED BLOOD CELL COUNT DECREASED [None]
  - SENSORY DISTURBANCE [None]
  - WHITE BLOOD CELL COUNT INCREASED [None]
